FAERS Safety Report 5520746-1 (Version None)
Quarter: 2007Q4

REPORT INFORMATION
  Report Type: 
  Country: None (occurrence: None)
  Receive Date: 20071115
  Receipt Date: 20071115
  Transmission Date: 20080405
  Serious: Yes (Hospitalization)
  Sender: FDA-Public Use
  Company Number: None

PATIENT
  Sex: Male

DRUGS (1)
  1. LEVITRA [Suspect]
     Indication: ERECTILE DYSFUNCTION
     Dosage: 10 MG ONCE PO; ONE DOSE
     Route: 048
     Dates: start: 20071111, end: 20071111

REACTIONS (6)
  - ABDOMINAL DISTENSION [None]
  - ABDOMINAL PAIN [None]
  - GASTROINTESTINAL OEDEMA [None]
  - NAUSEA [None]
  - TYPE I HYPERSENSITIVITY [None]
  - VOMITING [None]
